FAERS Safety Report 20249298 (Version 2)
Quarter: 2022Q2

REPORT INFORMATION
  Report Type: Spontaneous
  Country: US (occurrence: US)
  Receive Date: 20211229
  Receipt Date: 20220609
  Transmission Date: 20220721
  Serious: No
  Sender: FDA-Public Use
  Company Number: US-PFIZER INC-202101280172

PATIENT
  Age: 71 Year
  Sex: Female

DRUGS (1)
  1. XELJANZ XR [Suspect]
     Active Substance: TOFACITINIB CITRATE
     Indication: Rheumatoid arthritis
     Dosage: 11 MG, DAILY
     Route: 048
     Dates: start: 202108, end: 2022

REACTIONS (4)
  - Drug ineffective [Unknown]
  - Arthralgia [Unknown]
  - Loss of personal independence in daily activities [Unknown]
  - Sciatica [Unknown]
